FAERS Safety Report 14509564 (Version 1)
Quarter: 2018Q1

REPORT INFORMATION
  Report Type: Spontaneous
  Country: US (occurrence: US)
  Receive Date: 20180209
  Receipt Date: 20180209
  Transmission Date: 20180509
  Serious: Yes (Hospitalization, Other)
  Sender: FDA-Public Use
  Company Number: US-GLAXOSMITHKLINE-US2018020898

PATIENT
  Sex: Male

DRUGS (28)
  1. VENTOLIN HFA [Suspect]
     Active Substance: ALBUTEROL SULFATE
     Indication: CHRONIC OBSTRUCTIVE PULMONARY DISEASE
     Dosage: UNK UNK, U
     Route: 055
  2. ATORVASTATIN [Concomitant]
     Active Substance: ATORVASTATIN
  3. MORPHINE [Concomitant]
     Active Substance: MORPHINE
  4. ZETIA [Concomitant]
     Active Substance: EZETIMIBE
  5. ZANAFLEX [Concomitant]
     Active Substance: TIZANIDINE HYDROCHLORIDE
  6. ZINC OXIDE. [Concomitant]
     Active Substance: ZINC OXIDE
  7. ALLOPURINOL. [Concomitant]
     Active Substance: ALLOPURINOL
  8. ASPIRIN. [Concomitant]
     Active Substance: ASPIRIN
  9. IRON SUPPLEMENT [Concomitant]
     Active Substance: IRON
  10. XANAX [Concomitant]
     Active Substance: ALPRAZOLAM
  11. BRILINTA [Concomitant]
     Active Substance: TICAGRELOR
  12. ISOSORBIDE MONONITRATE. [Concomitant]
     Active Substance: ISOSORBIDE MONONITRATE
  13. TOPAMAX [Concomitant]
     Active Substance: TOPIRAMATE
  14. EFFEXOR [Concomitant]
     Active Substance: VENLAFAXINE HYDROCHLORIDE
  15. LEVEMIR [Concomitant]
     Active Substance: INSULIN DETEMIR
  16. ALPRAZOLAM. [Concomitant]
     Active Substance: ALPRAZOLAM
  17. LACTULOSE. [Concomitant]
     Active Substance: LACTULOSE
  18. NOVOLOG [Concomitant]
     Active Substance: INSULIN ASPART
  19. OXYCODONE [Concomitant]
     Active Substance: OXYCODONE
  20. ADVAIR DISKUS [Suspect]
     Active Substance: FLUTICASONE PROPIONATE\SALMETEROL XINAFOATE
     Indication: CHRONIC OBSTRUCTIVE PULMONARY DISEASE
     Dosage: UNK UNK, U
     Route: 055
  21. CIPRO [Suspect]
     Active Substance: CIPROFLOXACIN HYDROCHLORIDE
     Indication: PRODUCT USED FOR UNKNOWN INDICATION
     Dosage: UNK UNK, U
  22. COREG [Concomitant]
     Active Substance: CARVEDILOL
  23. ABILIFY [Concomitant]
     Active Substance: ARIPIPRAZOLE
  24. ALBUTEROL NEBULIZER [Concomitant]
     Active Substance: ALBUTEROL
  25. GABAPENTIN. [Concomitant]
     Active Substance: GABAPENTIN
  26. JANUVIA [Concomitant]
     Active Substance: SITAGLIPTIN PHOSPHATE
  27. MIRALAX [Concomitant]
     Active Substance: POLYETHYLENE GLYCOL 3350
  28. RANEXA [Concomitant]
     Active Substance: RANOLAZINE

REACTIONS (17)
  - Corrective lens user [Unknown]
  - Visual impairment [Unknown]
  - Angiogram [Unknown]
  - Myocardial infarction [Unknown]
  - Cerebrovascular accident [Not Recovered/Not Resolved]
  - Cardiac failure congestive [Unknown]
  - Central venous catheterisation [Recovered/Resolved]
  - Hypertension [Unknown]
  - Gout [Unknown]
  - Osteomyelitis [Unknown]
  - Tooth abscess [Recovering/Resolving]
  - Bilevel positive airway pressure [Unknown]
  - Influenza [Recovering/Resolving]
  - Drug screen false positive [Unknown]
  - Sleep apnoea syndrome [Unknown]
  - Blood cholesterol increased [Unknown]
  - Wisdom teeth removal [Recovering/Resolving]

NARRATIVE: CASE EVENT DATE: 2008
